FAERS Safety Report 6221851-7 (Version None)
Quarter: 2009Q2

REPORT INFORMATION
  Report Type: 
  Country: None (occurrence: None)
  Receive Date: 20090609
  Receipt Date: 20090531
  Transmission Date: 20091009
  Serious: Yes (Other)
  Sender: FDA-Public Use
  Company Number: CHPA2009US12054

PATIENT
  Age: 58 Year
  Sex: Male

DRUGS (2)
  1. DESENEX [Suspect]
     Indication: FUNGAL INFECTION
     Dosage: QD, TOPICAL
     Route: 061
     Dates: start: 19990101
  2. LIPITOR [Concomitant]

REACTIONS (2)
  - HYPERTENSION [None]
  - INTENTIONAL DRUG MISUSE [None]
